FAERS Safety Report 7118265-4 (Version None)
Quarter: 2010Q4

REPORT INFORMATION
  Report Type: 
  Country: None (occurrence: None)
  Receive Date: 20101123
  Receipt Date: 20101111
  Transmission Date: 20110411
  Serious: Yes (Other)
  Sender: FDA-Public Use
  Company Number: JP-JNJFOC-20101104845

PATIENT
  Age: 63 Year
  Sex: Male

DRUGS (6)
  1. RISPERDAL [Suspect]
     Indication: ILL-DEFINED DISORDER
     Dosage: TWO 1 MG TABLETS, TWICE A DAY
     Route: 048
  2. RISPERDAL [Suspect]
     Route: 048
  3. HALOMONTH [Suspect]
     Indication: ILL-DEFINED DISORDER
     Route: 030
  4. BIPERIDEN HYDROCHLORIDE TAB [Concomitant]
     Indication: ILL-DEFINED DISORDER
     Dosage: TWO 1 MG TABLETS, TWICE A DAY
     Route: 048
  5. BIPERIDEN HYDROCHLORIDE TAB [Concomitant]
     Route: 048
  6. YOKUKAN-SAN [Concomitant]
     Route: 065

REACTIONS (8)
  - ASPIRATION [None]
  - COGNITIVE DISORDER [None]
  - HYPOREFLEXIA [None]
  - INCONTINENCE [None]
  - LOSS OF CONSCIOUSNESS [None]
  - ORTHOSTATIC HYPOTENSION [None]
  - OVERDOSE [None]
  - RESTLESSNESS [None]
